FAERS Safety Report 19391054 (Version 1)
Quarter: 2021Q2

REPORT INFORMATION
  Report Type: Spontaneous
  Country: US (occurrence: US)
  Receive Date: 20210608
  Receipt Date: 20210608
  Transmission Date: 20210717
  Serious: Yes (Life-Threatening, Hospitalization)
  Sender: FDA-Public Use
  Company Number: US-SLATE RUN PHARMACEUTICALS-21US000516

PATIENT

DRUGS (2)
  1. BUPROPION HYDROCHLORIDE EXTENDED RELEASE USP (XL) [Suspect]
     Active Substance: BUPROPION HYDROCHLORIDE
     Indication: PRODUCT USED FOR UNKNOWN INDICATION
     Dosage: UNK
  2. CITALOPRAM [Suspect]
     Active Substance: CITALOPRAM HYDROBROMIDE
     Indication: PRODUCT USED FOR UNKNOWN INDICATION
     Dosage: UNK

REACTIONS (11)
  - Vasoplegia syndrome [Recovered/Resolved]
  - Ejection fraction decreased [Recovering/Resolving]
  - Distributive shock [Recovering/Resolving]
  - Circulatory collapse [Recovering/Resolving]
  - Seizure [Recovered/Resolved]
  - Overdose [Unknown]
  - Drug level increased [Recovering/Resolving]
  - Cardiogenic shock [Unknown]
  - Acidosis [Unknown]
  - Cardiac arrest [Recovered/Resolved]
  - Tachyarrhythmia [Unknown]
